FAERS Safety Report 7065602-5 (Version None)
Quarter: 2010Q4

REPORT INFORMATION
  Report Type: 
  Country: None (occurrence: None)
  Receive Date: 20101027
  Receipt Date: 20101020
  Transmission Date: 20110411
  Serious: Yes (Hospitalization)
  Sender: FDA-Public Use
  Company Number: FR-ROCHE-735448

PATIENT
  Sex: Male

DRUGS (11)
  1. PEGINTERFERON ALFA-2A [Suspect]
     Route: 058
     Dates: start: 20091110
  2. PEGINTERFERON ALFA-2A [Suspect]
     Route: 058
     Dates: start: 20100104
  3. PEGINTERFERON ALFA-2A [Suspect]
     Route: 058
     Dates: end: 20100426
  4. RIBAVIRIN [Suspect]
     Route: 048
     Dates: start: 20091110
  5. RIBAVIRIN [Suspect]
     Route: 048
     Dates: start: 20100104
  6. RIBAVIRIN [Suspect]
     Route: 048
     Dates: end: 20100426
  7. ESIDRIX [Concomitant]
  8. AMLODIPINE [Concomitant]
  9. RAMIPRIL [Concomitant]
     Dosage: DRUG NAME REPORTED AS ^RANIPRIL^
  10. LANTUS [Concomitant]
  11. PREVISCAN [Concomitant]
     Indication: DEEP VEIN THROMBOSIS

REACTIONS (2)
  - HAEMOLYTIC ANAEMIA [None]
  - PROSTATITIS [None]
